FAERS Safety Report 8026794-4 (Version None)
Quarter: 2011Q4

REPORT INFORMATION
  Report Type: 
  Country: None (occurrence: None)
  Receive Date: 20111130
  Receipt Date: 20110531
  Transmission Date: 20120403
  Serious: Yes (Hospitalization, Other)
  Sender: FDA-Public Use
  Company Number: US200910005610

PATIENT
  Age: 47 Year
  Sex: Female
  Weight: 119.7 kg

DRUGS (15)
  1. EXENATIDE (EXENATIDE PEN) [Concomitant]
  2. IRON [Concomitant]
  3. TRICOR [Concomitant]
  4. TRAZODONE HCL [Concomitant]
  5. PYRIDIUM (PHENAZOPYIDINE HYDROCHLORIDE) [Concomitant]
  6. BYETTA [Suspect]
     Indication: DIABETES MELLITUS
     Dosage: 5 UG, BID, SUBCUTANEOUS
     Route: 058
     Dates: start: 20051001, end: 20080810
  7. CALCIUM CARBONATE [Concomitant]
  8. BACTRIM [Concomitant]
  9. TOPAMAX [Concomitant]
  10. METFORMIN HCL [Concomitant]
  11. VYTORIN (EXETIMIBE, SIMVASTATIN) [Concomitant]
  12. MOTRIN [Concomitant]
  13. CYMBALTA [Concomitant]
  14. ACTOS [Concomitant]
  15. PREDNISONE [Concomitant]

REACTIONS (5)
  - RENAL FAILURE [None]
  - WEIGHT DECREASED [None]
  - NAUSEA [None]
  - VOMITING [None]
  - PANCREATITIS ACUTE [None]
